FAERS Safety Report 15096066 (Version 2)
Quarter: 2018Q3

REPORT INFORMATION
  Report Type: Spontaneous
  Country: US (occurrence: US)
  Receive Date: 20180702
  Receipt Date: 20180903
  Transmission Date: 20181010
  Serious: No
  Sender: FDA-Public Use
  Company Number: US-B.I. PHARMACEUTICALS,INC./RIDGEFIELD-2018-BI-032806

PATIENT
  Sex: Female

DRUGS (1)
  1. CATAPRES?TTS [Suspect]
     Active Substance: CLONIDINE
     Indication: HYPERTENSION
     Dosage: FORM STRENGTH: 5.0 MG (0.2MG / DAY)           ACTION(S) TAKEN WITH PRODUCT: DOSE NOT CHANGED
     Route: 050
     Dates: start: 1996

REACTIONS (2)
  - Extra dose administered [Not Recovered/Not Resolved]
  - Product quality issue [Unknown]

NARRATIVE: CASE EVENT DATE: 1996
